FAERS Safety Report 6251128-5 (Version None)
Quarter: 2009Q2

REPORT INFORMATION
  Report Type: 
  Country: None (occurrence: None)
  Receive Date: 20090630
  Receipt Date: 20090410
  Transmission Date: 20091009
  Serious: No
  Sender: FDA-Public Use
  Company Number: US-ABBOTT-09P-163-0567657-00

PATIENT
  Sex: Female

DRUGS (1)
  1. ZEMPLAR [Suspect]
     Indication: HYPERPARATHYROIDISM
     Dosage: OTHER
     Dates: start: 20080501

REACTIONS (2)
  - HEADACHE [None]
  - NAUSEA [None]
